FAERS Safety Report 12671271 (Version 1)
Quarter: 2016Q3

REPORT INFORMATION
  Report Type: Spontaneous
  Country: None (occurrence: None)
  Receive Date: 20160819
  Receipt Date: 20160819
  Transmission Date: 20161109
  Serious: No
  Sender: FDA-Public Use
  Company Number: None

PATIENT
  Age: 71 Year
  Sex: Male
  Weight: 112.04 kg

DRUGS (8)
  1. TORSEMINDE [Concomitant]
  2. KLO-KON [Concomitant]
  3. ATORVASTATIN [Concomitant]
     Active Substance: ATORVASTATIN
  4. XARELTO [Suspect]
     Active Substance: RIVAROXABAN
     Indication: ANTICOAGULANT THERAPY
     Dates: start: 20151015, end: 20160816
  5. ASPIRIN. [Concomitant]
     Active Substance: ASPIRIN
  6. FLOMAX [Concomitant]
     Active Substance: TAMSULOSIN HYDROCHLORIDE
  7. NITROSTAT [Concomitant]
     Active Substance: NITROGLYCERIN
  8. METOPROLOL. [Concomitant]
     Active Substance: METOPROLOL

REACTIONS (2)
  - Haematuria [None]
  - Cardiac disorder [None]

NARRATIVE: CASE EVENT DATE: 20160816
